FAERS Safety Report 10561775 (Version 1)
Quarter: 2014Q4

REPORT INFORMATION
  Report Type: Spontaneous
  Country: FR (occurrence: FR)
  Receive Date: 20141103
  Receipt Date: 20141103
  Transmission Date: 20150529
  Serious: Yes (Hospitalization)
  Sender: FDA-Public Use
  Company Number: FR-009507513-1410FRA015607

PATIENT
  Age: 22 Year
  Sex: Female

DRUGS (3)
  1. FOSTIMON [Suspect]
     Active Substance: UROFOLLITROPIN
     Dosage: STRENGTH: 150 IU/ML, DOSE: 1 DF, QD
     Route: 058
     Dates: start: 20140317, end: 20140324
  2. ORGALUTRAN [Suspect]
     Active Substance: GANIRELIX ACETATE
     Dosage: STRENGTH: 0.25MG/0.5ML, DOSE: 1 DF, QD
     Route: 058
     Dates: start: 20140321, end: 20140324
  3. OVITRELLE [Suspect]
     Active Substance: CHORIOGONADOTROPIN ALFA
     Dosage: STRENGTH: 250UG/0.5ML, DOSE: 1 DF, ONCE
     Route: 058
     Dates: start: 20140325

REACTIONS (2)
  - Ovarian hyperstimulation syndrome [Recovered/Resolved]
  - Pleural effusion [Recovered/Resolved]

NARRATIVE: CASE EVENT DATE: 20140405
